FAERS Safety Report 4899141-4 (Version None)
Quarter: 2006Q1

REPORT INFORMATION
  Report Type: 
  Country: None (occurrence: None)
  Receive Date: 20060202
  Receipt Date: 20060131
  Transmission Date: 20060701
  Serious: Yes (Other)
  Sender: FDA-Public Use
  Company Number: JP-SANOFI-SYNTHELABO-F01200600251

PATIENT
  Age: 80 Year
  Sex: Female
  Weight: 49 kg

DRUGS (3)
  1. OXALIPLATIN [Suspect]
     Indication: COLON CANCER
     Route: 042
     Dates: start: 20050721, end: 20050721
  2. FLUOROURACIL [Suspect]
     Dosage: 560 MG (405.8 MG/M2) IV BOLUS THEN 3250 MG (2355.1 MG/M2) CONTINUOUS INFUSION DAYS 1-2, Q2W
     Route: 042
     Dates: start: 20050721, end: 20050722
  3. CALCIUM LEVOFOLINATE [Suspect]
     Route: 042
     Dates: start: 20050721, end: 20050721

REACTIONS (2)
  - LOSS OF CONSCIOUSNESS [None]
  - SYNCOPE [None]
